FAERS Safety Report 10188917 (Version 1)
Quarter: 2014Q2

REPORT INFORMATION
  Report Type: Spontaneous
  Country: US (occurrence: US)
  Receive Date: 20140522
  Receipt Date: 20140522
  Transmission Date: 20141212
  Serious: No
  Sender: FDA-Public Use
  Company Number: US-ZOGENIX, INC.-2014ZX000111

PATIENT
  Sex: Female
  Weight: 167.98 kg

DRUGS (1)
  1. ZOHYDRO ER [Suspect]
     Indication: BACK PAIN
     Route: 048
     Dates: start: 20140415

REACTIONS (2)
  - Somnolence [Unknown]
  - Drug ineffective [Not Recovered/Not Resolved]
